FAERS Safety Report 7822262-0 (Version None)
Quarter: 2011Q4

REPORT INFORMATION
  Report Type: 
  Country: None (occurrence: None)
  Receive Date: 20111018
  Receipt Date: 20110215
  Transmission Date: 20120403
  Serious: No
  Sender: FDA-Public Use
  Company Number: US-ASTRAZENECA-2011SE09058

PATIENT
  Age: 63 Year
  Sex: Female

DRUGS (5)
  1. NEXIUM [Suspect]
     Route: 048
  2. NITROGLYCERIN [Concomitant]
     Route: 048
  3. SYMBICORT [Suspect]
     Indication: ASTHMA
     Dosage: 160/4.5 MCG UNKNOWN
     Route: 055
  4. SYMBICORT [Suspect]
     Indication: CHRONIC OBSTRUCTIVE PULMONARY DISEASE
     Dosage: 160/4.5 MCG UNKNOWN
     Route: 055
  5. SYMBICORT [Suspect]
     Indication: EMPHYSEMA
     Dosage: 160/4.5 MCG UNKNOWN
     Route: 055

REACTIONS (2)
  - CHEST PAIN [None]
  - UPPER RESPIRATORY TRACT INFECTION [None]
